FAERS Safety Report 8217225-X (Version None)
Quarter: 2012Q1

REPORT INFORMATION
  Report Type: 
  Country: None (occurrence: None)
  Receive Date: 20120319
  Receipt Date: 20120314
  Transmission Date: 20120608
  Serious: No
  Sender: FDA-Public Use
  Company Number: US-PFIZER INC-2012068135

PATIENT
  Sex: Male
  Weight: 109 kg

DRUGS (6)
  1. WELLBUTRIN [Suspect]
     Indication: MOOD SWINGS
     Dosage: 100 MG, UNK
  2. LISINOPRIL [Suspect]
     Indication: HYPERTENSION
     Dosage: 10 MG, UNK
  3. WELLBUTRIN [Suspect]
     Indication: ANTIDEPRESSANT THERAPY
  4. CELEXA [Suspect]
     Indication: ANTIDEPRESSANT THERAPY
     Dosage: 40 MG, UNK
  5. GEODON [Suspect]
     Indication: HALLUCINATION
     Dosage: 180 MG, UNK
  6. BYSTOLIC [Suspect]
     Dosage: UNK

REACTIONS (1)
  - WEIGHT INCREASED [None]
